FAERS Safety Report 11929583 (Version 4)
Quarter: 2020Q3

REPORT INFORMATION
  Report Type: Report from Study
  Country: JP (occurrence: JP)
  Receive Date: 20160120
  Receipt Date: 20160629
  Transmission Date: 20201105
  Serious: Yes (Death, Hospitalization, Other)
  Sender: FDA-Public Use
  Company Number: JP-ROCHE-1696800

PATIENT
  Age: 52 Year
  Sex: Female
  Weight: 53 kg

DRUGS (1)
  1. ALECTINIB. [Suspect]
     Active Substance: ALECTINIB
     Indication: LUNG ADENOCARCINOMA
     Route: 048
     Dates: start: 20150617, end: 20151214

REACTIONS (6)
  - Disseminated intravascular coagulation [Unknown]
  - Liver disorder [Recovering/Resolving]
  - Cardiac failure [Fatal]
  - Neutrophil count decreased [Recovering/Resolving]
  - Blood creatine phosphokinase increased [Recovered/Resolved]
  - Metastases to heart [Fatal]

NARRATIVE: CASE EVENT DATE: 20150629
